FAERS Safety Report 18343121 (Version 1)
Quarter: 2020Q4

REPORT INFORMATION
  Report Type: Spontaneous
  Country: US (occurrence: US)
  Receive Date: 20201003
  Receipt Date: 20201003
  Transmission Date: 20210113
  Serious: Yes (Other)
  Sender: FDA-Public Use
  Company Number: None

PATIENT
  Age: 26 Year
  Sex: Female
  Weight: 49.5 kg

DRUGS (2)
  1. ETONOGESTREL/ETHINYL ESTRADIOL [Suspect]
     Active Substance: ETHINYL ESTRADIOL\ETONOGESTREL
     Indication: CONTRACEPTION
     Dosage: ?          QUANTITY:1 PER DAY;OTHER FREQUENCY:INSERT 21 DAYS;?
     Route: 067
     Dates: start: 20200720, end: 20200929
  2. ADDERALL [Concomitant]
     Active Substance: AMPHETAMINE ASPARTATE\AMPHETAMINE SULFATE\DEXTROAMPHETAMINE SACCHARATE\DEXTROAMPHETAMINE SULFATE

REACTIONS (11)
  - Product substitution issue [None]
  - Hypoaesthesia [None]
  - Vulvovaginal pruritus [None]
  - Vulvovaginal burning sensation [None]
  - Weight increased [None]
  - Migraine [None]
  - Palpitations [None]
  - Mood swings [None]
  - Anxiety [None]
  - Nausea [None]
  - Fatigue [None]

NARRATIVE: CASE EVENT DATE: 20200929
